FAERS Safety Report 6217456-4 (Version None)
Quarter: 2009Q2

REPORT INFORMATION
  Report Type: 
  Country: None (occurrence: None)
  Receive Date: 20090608
  Receipt Date: 20081027
  Transmission Date: 20091009
  Serious: No
  Sender: FDA-Public Use
  Company Number: A0754245A

PATIENT

DRUGS (1)
  1. BUPROPION HCL [Suspect]
     Indication: SEASONAL AFFECTIVE DISORDER
     Route: 065

REACTIONS (1)
  - DRUG INEFFECTIVE [None]
